FAERS Safety Report 5946166-3 (Version None)
Quarter: 2008Q4

REPORT INFORMATION
  Report Type: 
  Country: None (occurrence: None)
  Receive Date: 20081106
  Receipt Date: 20081106
  Transmission Date: 20090506
  Serious: Yes (Death)
  Sender: FDA-Public Use
  Company Number: None

PATIENT
  Sex: Female

DRUGS (1)
  1. MEPERIDINE HCL [Suspect]

REACTIONS (2)
  - DRUG TOXICITY [None]
  - PRODUCT QUALITY ISSUE [None]
